FAERS Safety Report 20796263 (Version 1)
Quarter: 2022Q2

REPORT INFORMATION
  Report Type: Report from Study
  Country: CO (occurrence: None)
  Receive Date: 20220506
  Receipt Date: 20220506
  Transmission Date: 20220721
  Serious: Yes (Hospitalization)
  Sender: FDA-Public Use
  Company Number: 2022A171980

PATIENT
  Age: 26390 Day
  Sex: Male
  Weight: 62 kg

DRUGS (1)
  1. CALQUENCE [Suspect]
     Active Substance: ACALABRUTINIB
     Indication: Chronic lymphocytic leukaemia
     Route: 048
     Dates: start: 20220125, end: 20220423

REACTIONS (4)
  - Peripheral swelling [Recovering/Resolving]
  - Decreased appetite [Recovering/Resolving]
  - White blood cell count increased [Recovering/Resolving]
  - Diarrhoea [Recovering/Resolving]

NARRATIVE: CASE EVENT DATE: 20220401
